FAERS Safety Report 11624639 (Version 1)
Quarter: 2015Q4

REPORT INFORMATION
  Report Type: Spontaneous
  Country: US (occurrence: US)
  Receive Date: 20151013
  Receipt Date: 20151013
  Transmission Date: 20160304
  Serious: Yes (Other)
  Sender: FDA-Public Use
  Company Number: US-SUN PHARMACEUTICAL INDUSTRIES LTD-2015US-104348

PATIENT
  Sex: Female

DRUGS (2)
  1. POTTASSIUM [Concomitant]
     Indication: PRODUCT USED FOR UNKNOWN INDICATION
     Route: 065
  2. ACETAMINOPHEN. [Suspect]
     Active Substance: ACETAMINOPHEN
     Indication: ARTHRITIS
     Route: 048

REACTIONS (5)
  - Choking [Unknown]
  - Foreign body [Unknown]
  - Oropharyngeal pain [Unknown]
  - Lacrimation increased [Unknown]
  - Dysphagia [Unknown]
